FAERS Safety Report 9268076 (Version 1)
Quarter: 2013Q2

REPORT INFORMATION
  Report Type: Spontaneous
  Country: US (occurrence: US)
  Receive Date: 20130502
  Receipt Date: 20130502
  Transmission Date: 20140414
  Serious: Yes (Hospitalization)
  Sender: FDA-Public Use
  Company Number: US-ALEXION-A201201519

PATIENT
  Sex: Female

DRUGS (23)
  1. SOLIRIS 300MG [Suspect]
     Indication: HAEMOLYTIC URAEMIC SYNDROME
     Dosage: 1200 MG, UNK
     Route: 042
     Dates: start: 201110
  2. SOLIRIS 300MG [Suspect]
     Dosage: UNK, Q2W
     Route: 042
  3. PREDNISONE [Concomitant]
     Dosage: 10 MG, BID
  4. DIOVAN [Concomitant]
     Dosage: 160 MG, BID
  5. SODIUM BICARBONATE [Concomitant]
     Dosage: 1300 MG, TID
  6. CLONIDINE [Concomitant]
     Dosage: 0.3 MG, Q 8 HRS
  7. DILTIAZEM CD [Concomitant]
     Dosage: 360 MG, QD
  8. LORAZEPAM [Concomitant]
     Indication: ANXIETY
     Dosage: 0.5 MG, TID PRN
  9. CITALOPRAM [Concomitant]
     Dosage: 30 MG, QD
  10. PHENERGAN [Concomitant]
     Indication: NAUSEA
     Dosage: UNK, PRN
  11. REGLAN [Concomitant]
     Dosage: 10 MG, QID
     Route: 048
  12. FLUCONAZOLE [Concomitant]
     Dosage: 100 MG, QD
  13. VALCYTE [Concomitant]
     Dosage: 450 MG, QD
     Route: 048
  14. AMBIEN [Concomitant]
     Dosage: 10 MG, NIGHTLY
  15. COREG [Concomitant]
     Dosage: 25 MG,Q 12 HRS
  16. NORVASC [Concomitant]
     Dosage: 5 MG, QD
  17. AZATHIOPRINE [Concomitant]
     Dosage: 50 MG, QD
  18. TACROLIMUS [Concomitant]
     Dosage: 3 MG, TID
  19. CINACALCET [Concomitant]
     Dosage: 90 MG, QD
  20. OMEPRAZOLE [Concomitant]
     Dosage: 20 MG, BID
     Route: 048
  21. CIPRO [Concomitant]
     Dosage: 500 MG, Q 12 HRS
  22. MINOXIDIL [Concomitant]
     Dosage: 2.5 MG, TID
  23. VITAMIN D [Concomitant]
     Dosage: 50000 IU, QW
     Route: 048

REACTIONS (2)
  - Urinary tract infection [Recovering/Resolving]
  - Blood urine present [Unknown]
